FAERS Safety Report 17124927 (Version 1)
Quarter: 2019Q4

REPORT INFORMATION
  Report Type: Spontaneous
  Country: US (occurrence: US)
  Receive Date: 20191206
  Receipt Date: 20191206
  Transmission Date: 20200122
  Serious: No
  Sender: FDA-Public Use
  Company Number: US-TEVA-2019-US-1150632

PATIENT
  Age: 72 Year
  Sex: Female

DRUGS (1)
  1. LORAZEPAM TABLET UNKNOWN MANUFACTURER [Suspect]
     Active Substance: LORAZEPAM
     Indication: PANIC ATTACK
     Route: 065

REACTIONS (1)
  - Formication [Unknown]
